FAERS Safety Report 5960338-3 (Version None)
Quarter: 2008Q4

REPORT INFORMATION
  Report Type: 
  Country: None (occurrence: None)
  Receive Date: 20081114
  Receipt Date: 20080414
  Transmission Date: 20090506
  Serious: Yes (Other)
  Sender: FDA-Public Use
  Company Number: 47429

PATIENT
  Age: 67 Year
  Sex: Male
  Weight: 116.5744 kg

DRUGS (1)
  1. CARBOPLATIN [Suspect]
     Indication: ADENOSQUAMOUS CELL LUNG CANCER
     Dosage: 300MG VIA PERIPHERAL IV
     Route: 042
     Dates: start: 20080414

REACTIONS (1)
  - EXTRAVASATION [None]
